FAERS Safety Report 16465742 (Version 1)
Quarter: 2019Q2

REPORT INFORMATION
  Report Type: Spontaneous
  Country: US (occurrence: US)
  Receive Date: 20190621
  Receipt Date: 20190621
  Transmission Date: 20190711
  Serious: Yes (Hospitalization, Other)
  Sender: FDA-Public Use
  Company Number: US-TEVA-2019-US-1064476

PATIENT
  Sex: Male

DRUGS (2)
  1. BENAZEPRIL [Concomitant]
     Active Substance: BENAZEPRIL HYDROCHLORIDE
     Dosage: FOR 3 YEARS AND THE ^OTHER ONE WITH AN L^ FOR 5-7 YEARS.
     Route: 065
  2. LISINOPRIL AND HYDROCHLOROTHIAZIDE [Suspect]
     Active Substance: HYDROCHLOROTHIAZIDE\LISINOPRIL
     Indication: HYPERTENSION
     Dosage: HE WAS STARTED ON 10/12.5 AND WAS INCREASED TO 20
     Route: 065
     Dates: start: 2011

REACTIONS (9)
  - Abdominal pain upper [Unknown]
  - Sleep disorder [Unknown]
  - Drug ineffective [Unknown]
  - Pancreatolithiasis [Not Recovered/Not Resolved]
  - Throat irritation [Unknown]
  - Weight decreased [Unknown]
  - Dyspnoea [Unknown]
  - Cough [Unknown]
  - Oropharyngeal pain [Unknown]
